FAERS Safety Report 9224781 (Version 2)
Quarter: 2013Q2

REPORT INFORMATION
  Report Type: Spontaneous
  Country: JP (occurrence: JP)
  Receive Date: 20130411
  Receipt Date: 20130425
  Transmission Date: 20140414
  Serious: Yes (Other)
  Sender: FDA-Public Use
  Company Number: JP-ASTELLAS-2013JP004821

PATIENT
  Sex: Female

DRUGS (2)
  1. BETANIS [Suspect]
     Dosage: 50 MG, UID/QD
     Route: 048
     Dates: start: 201301
  2. ALFAROL [Concomitant]
     Route: 048

REACTIONS (2)
  - Tachycardia [Recovered/Resolved]
  - Thyroid function test abnormal [Recovered/Resolved]
